FAERS Safety Report 5212813-7 (Version None)
Quarter: 2007Q1

REPORT INFORMATION
  Report Type: 
  Country: None (occurrence: None)
  Receive Date: 20070119
  Receipt Date: 20070111
  Transmission Date: 20070707
  Serious: Yes (Other)
  Sender: FDA-Public Use
  Company Number: PHBS2007JP00502

PATIENT
  Age: 65 Year
  Sex: Female

DRUGS (11)
  1. VERAPAMIL [Concomitant]
     Indication: ARRHYTHMIA
     Dosage: 100 MG/DAY
  2. ASPIRIN [Concomitant]
     Dosage: 2 MG/DAY
  3. WARFARIN SODIUM [Concomitant]
     Dosage: 180 MG/DAY
  4. LOXOPROFEN [Concomitant]
     Dosage: 150 MG/DAY
  5. TEPRENONE [Concomitant]
  6. PAROXETINE HCL [Suspect]
     Dosage: 10 MG/DAY
  7. PAROXETINE HCL [Suspect]
     Dosage: 20 MG/DAY
  8. PAROXETINE HCL [Suspect]
     Dosage: 30 MG/DAY
  9. ETIZOLAM [Concomitant]
     Dosage: 0.5 MG/DAY
  10. ZOLPIDEM TARTRATE [Concomitant]
     Dosage: 10 MG/DAY
  11. VALSARTAN [Suspect]
     Indication: HYPERTENSION
     Dosage: 80 MG/DAY

REACTIONS (22)
  - AGITATION [None]
  - ANXIETY [None]
  - CHILLS [None]
  - CLONUS [None]
  - DECREASED INTEREST [None]
  - DEPRESSION [None]
  - DYSARTHRIA [None]
  - FAMILY STRESS [None]
  - FATIGUE [None]
  - GAIT DISTURBANCE [None]
  - HEADACHE [None]
  - HYPOCHONDRIASIS [None]
  - MUSCULAR WEAKNESS [None]
  - MUSCULOSKELETAL STIFFNESS [None]
  - PAIN [None]
  - PALPITATIONS [None]
  - SEROTONIN SYNDROME [None]
  - SLEEP DISORDER [None]
  - TENSION [None]
  - TREMOR [None]
  - VISUAL ACUITY REDUCED [None]
  - WEIGHT DECREASED [None]
